FAERS Safety Report 10302297 (Version 2)
Quarter: 2015Q1

REPORT INFORMATION
  Report Type: Spontaneous
  Country: US (occurrence: US)
  Receive Date: 20140714
  Receipt Date: 20150115
  Transmission Date: 20150720
  Serious: No
  Sender: FDA-Public Use
  Company Number: US-GILEAD-2014-0108510

PATIENT
  Age: 16 Year
  Sex: Male

DRUGS (3)
  1. TRACLEER [Concomitant]
     Active Substance: BOSENTAN\BOSENTAN MONOHYDRATE
  2. LETAIRIS [Suspect]
     Active Substance: AMBRISENTAN
     Indication: PULMONARY HYPERTENSION
  3. LETAIRIS [Suspect]
     Active Substance: AMBRISENTAN
     Indication: EISENMENGER^S SYNDROME
     Dosage: 10 MG, QD
     Route: 065
     Dates: start: 20140130

REACTIONS (1)
  - Circumcision [Unknown]

NARRATIVE: CASE EVENT DATE: 201406
